FAERS Safety Report 19623060 (Version 1)
Quarter: 2021Q3

REPORT INFORMATION
  Report Type: Spontaneous
  Country: US (occurrence: US)
  Receive Date: 20210728
  Receipt Date: 20210728
  Transmission Date: 20211014
  Serious: No
  Sender: FDA-Public Use
  Company Number: US-DRREDDYS-SPO/USA/21/0138245

PATIENT
  Age: 18 Year
  Sex: Female

DRUGS (3)
  1. ZENATANE [Suspect]
     Active Substance: ISOTRETINOIN
     Indication: PRODUCT USED FOR UNKNOWN INDICATION
     Dosage: RMA ISSUE DATE;16?MARCH?2021 10:05:02 PM
  2. ZENATANE [Suspect]
     Active Substance: ISOTRETINOIN
     Dosage: RMA ISSUE DATE:15?APRIL?/2021 3:22:00 PM,1?JUNE?2021 5:02:14 PM
  3. ZENATANE [Suspect]
     Active Substance: ISOTRETINOIN
     Dosage: RMA ISSUE DATE:26?JUNE?2021 4:23:05 PM

REACTIONS (1)
  - Therapy cessation [Unknown]
